FAERS Safety Report 25226832 (Version 1)
Quarter: 2025Q2

REPORT INFORMATION
  Report Type: Spontaneous
  Country: US (occurrence: None)
  Receive Date: 20250422
  Receipt Date: 20250422
  Transmission Date: 20250716
  Serious: Yes (Disabling, Other)
  Sender: FDA-CTU
  Company Number: None

PATIENT
  Age: 65 Year
  Sex: Female
  Weight: 54 kg

DRUGS (4)
  1. SULFAMETHOXAZOLE\TRIMETHOPRIM [Suspect]
     Active Substance: SULFAMETHOXAZOLE\TRIMETHOPRIM
     Indication: Cellulitis orbital
     Dosage: FREQUENCY : TWICE A DAY;?
     Route: 048
     Dates: start: 20250107, end: 20250111
  2. CLARITIN [Concomitant]
     Active Substance: LORATADINE
  3. FLONASE [Concomitant]
     Active Substance: FLUTICASONE PROPIONATE
  4. Albuterol (as needed) [Concomitant]

REACTIONS (30)
  - Arthralgia [None]
  - Pain in extremity [None]
  - Thermal burn [None]
  - Musculoskeletal discomfort [None]
  - Pyrexia [None]
  - Nausea [None]
  - Decreased appetite [None]
  - Myalgia [None]
  - Back pain [None]
  - Fatigue [None]
  - Decreased activity [None]
  - Musculoskeletal stiffness [None]
  - Headache [None]
  - Chromaturia [None]
  - Thirst [None]
  - Drug ineffective [None]
  - Lymphadenopathy [None]
  - Lymphadenopathy [None]
  - Joint swelling [None]
  - Hypersensitivity [None]
  - Hypotension [None]
  - Feeling abnormal [None]
  - Gait disturbance [None]
  - Impaired driving ability [None]
  - Chondrocalcinosis [None]
  - Hepatitis acute [None]
  - Somnolence [None]
  - Visual impairment [None]
  - Photopsia [None]
  - Vitreous disorder [None]

NARRATIVE: CASE EVENT DATE: 20250111
